FAERS Safety Report 5336253-5 (Version None)
Quarter: 2007Q2

REPORT INFORMATION
  Report Type: 
  Country: None (occurrence: None)
  Receive Date: 20070315
  Receipt Date: 20070129
  Transmission Date: 20071010
  Serious: Yes (Other)
  Sender: FDA-Public Use
  Company Number: BDI-009079

PATIENT
  Age: 39 Year
  Sex: Male

DRUGS (6)
  1. MULTIHANCE [Suspect]
     Indication: MULTIPLE SCLEROSIS
     Dosage: 15 ML ONCE IV
     Route: 042
     Dates: start: 20070112, end: 20070112
  2. MULTIHANCE [Suspect]
     Indication: NUCLEAR MAGNETIC RESONANCE IMAGING
     Dosage: 15 ML ONCE IV
     Route: 042
     Dates: start: 20070112, end: 20070112
  3. SOLU-MEDROL [Concomitant]
  4. BACLOFEN [Concomitant]
  5. ZOLOFT [Concomitant]
  6. TYSABRI [Concomitant]

REACTIONS (1)
  - HYPERSENSITIVITY [None]
